FAERS Safety Report 22232115 (Version 1)
Quarter: 2023Q2

REPORT INFORMATION
  Report Type: Spontaneous
  Country: US (occurrence: US)
  Receive Date: 20230420
  Receipt Date: 20230420
  Transmission Date: 20230721
  Serious: No
  Sender: FDA-Public Use
  Company Number: US-BEH-2023157522

PATIENT
  Sex: Female
  Weight: 25.85 kg

DRUGS (1)
  1. HIZENTRA [Suspect]
     Active Substance: HUMAN IMMUNOGLOBULIN G
     Indication: Selective IgG subclass deficiency
     Dosage: 3 GRAM, QW
     Route: 058
     Dates: start: 20221130

REACTIONS (5)
  - Gastroenteritis viral [Unknown]
  - Decreased appetite [Unknown]
  - Diarrhoea [Unknown]
  - Asthma [Unknown]
  - Weight decreased [Unknown]

NARRATIVE: CASE EVENT DATE: 20230101
